FAERS Safety Report 11074110 (Version 1)
Quarter: 2015Q2

REPORT INFORMATION
  Report Type: Spontaneous
  Country: US (occurrence: None)
  Receive Date: 20150427
  Receipt Date: 20150427
  Transmission Date: 20150821
  Serious: Yes (Other)
  Sender: FDA-Public Use
  Company Number: 2015AKN00223

PATIENT
  Age: 18 Year
  Sex: Female
  Weight: 97.3 kg

DRUGS (3)
  1. MYORISAN [Suspect]
     Active Substance: ISOTRETINOIN
     Indication: ACNE
     Route: 048
     Dates: start: 201409, end: 20150413
  2. ABSORICA [Suspect]
     Active Substance: ISOTRETINOIN
     Indication: ACNE
     Dates: start: 20150204
  3. EMOQUETTE (DEOSGESTEROL AND ETHINYL ESTRADIOL) [Concomitant]

REACTIONS (4)
  - Irritability [None]
  - Hyperlipidaemia [None]
  - Mood altered [None]
  - Depressed mood [None]
